FAERS Safety Report 22874488 (Version 4)
Quarter: 2023Q4

REPORT INFORMATION
  Report Type: Report from Study
  Country: US (occurrence: US)
  Receive Date: 20230828
  Receipt Date: 20231120
  Transmission Date: 20240110
  Serious: Yes (Other)
  Sender: FDA-Public Use
  Company Number: US-GILEAD-2023-0640587

PATIENT
  Age: 23 Year
  Sex: Female

DRUGS (13)
  1. AZTREONAM LYSINE [Suspect]
     Active Substance: AZTREONAM LYSINE
     Indication: Product used for unknown indication
     Dosage: 75 MG, TID (28 DAYS ON, 28 DAYS OFF)
     Route: 055
  2. AZTREONAM LYSINE [Suspect]
     Active Substance: AZTREONAM LYSINE
     Dosage: 75 MG, 28 DAYS ON AND 28 DAYS OFF. QUANTITY OF 84
     Route: 065
  3. AZTREONAM LYSINE [Suspect]
     Active Substance: AZTREONAM LYSINE
     Dosage: 28 DAYS ON AND 28 DAYS OFF 84 VIALS
     Route: 065
     Dates: start: 20230817
  4. HYDROCORTISONE [Concomitant]
     Active Substance: HYDROCORTISONE
  5. TIZANIDINE HYDROCHLORIDE [Concomitant]
     Active Substance: TIZANIDINE HYDROCHLORIDE
  6. SIMETHICONE (DIMETHICONE) [Concomitant]
     Active Substance: DIMETHICONE
  7. SCOPOLAMINE HYDROBROMIDE [HYOSCINE HYDROBROMIDE] [Concomitant]
  8. PROBIOTICS NOS [Concomitant]
     Active Substance: PROBIOTICS NOS
  9. GLYCOPYRROLATE [Concomitant]
     Active Substance: GLYCOPYRROLATE
  10. DIAZEPAM [Concomitant]
     Active Substance: DIAZEPAM
  11. BACLOFEN [Concomitant]
     Active Substance: BACLOFEN
  12. ALBUTEROL SULFATE [Concomitant]
     Active Substance: ALBUTEROL SULFATE
  13. SODIUM BICARBONATE [Concomitant]
     Active Substance: SODIUM BICARBONATE

REACTIONS (3)
  - Mechanical ventilation [Not Recovered/Not Resolved]
  - Aphasia [Unknown]
  - Off label use [Not Recovered/Not Resolved]

NARRATIVE: CASE EVENT DATE: 20230906
